FAERS Safety Report 6400405-3 (Version None)
Quarter: 2009Q4

REPORT INFORMATION
  Report Type: 
  Country: None (occurrence: None)
  Receive Date: 20091014
  Receipt Date: 20090924
  Transmission Date: 20100525
  Serious: Yes (Other)
  Sender: FDA-Public Use
  Company Number: CHPA2009CA19194

PATIENT
  Age: 52 Year
  Sex: Female
  Weight: 68.027 kg

DRUGS (1)
  1. BUCKLEY'S DM (NCH) [Suspect]
     Indication: NASOPHARYNGITIS
     Dosage: 1 TSP, ONCE/SINGLE
     Route: 048
     Dates: start: 20090923, end: 20090923

REACTIONS (7)
  - CHEST DISCOMFORT [None]
  - CYANOSIS [None]
  - DYSPNOEA [None]
  - HEADACHE [None]
  - LOSS OF CONSCIOUSNESS [None]
  - NAUSEA [None]
  - VOMITING [None]
